FAERS Safety Report 7575618-8 (Version None)
Quarter: 2011Q2

REPORT INFORMATION
  Report Type: 
  Country: None (occurrence: None)
  Receive Date: 20110628
  Receipt Date: 20110614
  Transmission Date: 20111010
  Serious: Yes (Disabling)
  Sender: FDA-Public Use
  Company Number: JP-MYLANLABS-2011S1012352

PATIENT
  Age: 75 Year
  Sex: Female

DRUGS (2)
  1. CARBOPLATIN [Suspect]
     Indication: UTERINE CANCER
     Route: 041
     Dates: start: 20101203, end: 20110602
  2. PACLITAXEL [Suspect]
     Indication: UTERINE CANCER
     Route: 041
     Dates: start: 20101203, end: 20110602

REACTIONS (1)
  - VISUAL ACUITY REDUCED [None]
